FAERS Safety Report 11984316 (Version 1)
Quarter: 2016Q1

REPORT INFORMATION
  Report Type: Spontaneous
  Country: US (occurrence: US)
  Receive Date: 20160201
  Receipt Date: 20160201
  Transmission Date: 20160526
  Serious: No
  Sender: FDA-Public Use
  Company Number: US-KADMON PHARMACEUTICALS, LLC-KAD201411-001448

PATIENT
  Sex: Female

DRUGS (6)
  1. SOVALDI [Concomitant]
     Active Substance: SOFOSBUVIR
  2. VITAMIN B12 [Concomitant]
     Active Substance: CYANOCOBALAMIN
     Indication: CEREBRAL DISORDER
  3. VITAMIN B1 [Concomitant]
     Active Substance: THIAMINE HYDROCHLORIDE
     Indication: CEREBRAL DISORDER
  4. RIBAVIRIN. [Suspect]
     Active Substance: RIBAVIRIN
  5. FOLIC ACID. [Concomitant]
     Active Substance: FOLIC ACID
     Indication: CEREBRAL DISORDER
  6. INTERFERON [Concomitant]
     Active Substance: INTERFERON

REACTIONS (10)
  - Dysphagia [Recovering/Resolving]
  - Fatigue [Unknown]
  - Rash [Recovering/Resolving]
  - Depression [Unknown]
  - Feeling abnormal [Unknown]
  - Dementia [Unknown]
  - Respiratory disorder [Recovering/Resolving]
  - Back pain [Recovering/Resolving]
  - Weight decreased [Unknown]
  - Abdominal distension [Recovering/Resolving]
